FAERS Safety Report 4666438-2 (Version None)
Quarter: 2005Q2

REPORT INFORMATION
  Report Type: 
  Country: None (occurrence: None)
  Receive Date: 20050518
  Receipt Date: 20050510
  Transmission Date: 20051028
  Serious: Yes (Other)
  Sender: FDA-Public Use
  Company Number: 2005072811

PATIENT
  Age: 56 Year
  Sex: Female
  Weight: 76.6579 kg

DRUGS (4)
  1. LIPITOR [Suspect]
     Indication: BLOOD CHOLESTEROL INCREASED
     Dosage: 10 MG (10 MG, 1 IN 1 D), ORAL
     Route: 048
     Dates: start: 20040101, end: 20050101
  2. BEXTRA [Suspect]
     Indication: TENDONITIS
     Dosage: ORAL
     Route: 048
     Dates: start: 20030101, end: 20030101
  3. CORTISONE ACETATE [Concomitant]
  4. VIOXX [Concomitant]

REACTIONS (6)
  - CONDITION AGGRAVATED [None]
  - DRUG INEFFECTIVE [None]
  - DYSPEPSIA [None]
  - GASTRIC DISORDER [None]
  - MALAISE [None]
  - TENDONITIS [None]
